FAERS Safety Report 24027745 (Version 1)
Quarter: 2024Q2

REPORT INFORMATION
  Report Type: Spontaneous
  Country: US (occurrence: US)
  Receive Date: 20240628
  Receipt Date: 20240628
  Transmission Date: 20240716
  Serious: No
  Sender: FDA-Public Use
  Company Number: US-JNJFOC-20240602747

PATIENT
  Age: 18 Year
  Sex: Male

DRUGS (1)
  1. ZYRTEC [Suspect]
     Active Substance: CETIRIZINE HYDROCHLORIDE
     Indication: Food allergy
     Dosage: ONE CAPLET ONCE
     Route: 065
     Dates: start: 20240530

REACTIONS (3)
  - Panic attack [Unknown]
  - Product use in unapproved indication [Unknown]
  - Product packaging difficult to open [Unknown]

NARRATIVE: CASE EVENT DATE: 20240530
